FAERS Safety Report 18197918 (Version 1)
Quarter: 2020Q3

REPORT INFORMATION
  Report Type: Report from Study
  Country: CA (occurrence: CA)
  Receive Date: 20200826
  Receipt Date: 20200826
  Transmission Date: 20201103
  Serious: Yes (Other)
  Sender: FDA-Public Use
  Company Number: PHHY2017CA100666

PATIENT
  Age: 65 Year
  Sex: Male

DRUGS (11)
  1. JADENU [Suspect]
     Active Substance: DEFERASIROX
     Indication: ANAEMIA
     Dosage: 900 MG, QD
     Route: 048
     Dates: start: 20170527
  2. JADENU [Suspect]
     Active Substance: DEFERASIROX
     Dosage: 1080 MG, QD (STRENGHT 360 MG)
     Route: 048
     Dates: start: 20170527
  3. JADENU [Suspect]
     Active Substance: DEFERASIROX
     Dosage: 720 MG, QD
     Route: 048
  4. JADENU [Suspect]
     Active Substance: DEFERASIROX
     Dosage: 1080 MG, QD
     Route: 048
  5. VITAMIN B2 [Concomitant]
     Active Substance: RIBOFLAVIN
     Indication: PRODUCT USED FOR UNKNOWN INDICATION
     Dosage: UNK UNK, QD
     Route: 065
  6. JADENU [Suspect]
     Active Substance: DEFERASIROX
     Dosage: 1260 MG, QD (STRENGTH: 360 MG, 180 MG)
     Route: 048
  7. TYLENOL [Concomitant]
     Active Substance: ACETAMINOPHEN
     Indication: PRODUCT USED FOR UNKNOWN INDICATION
     Dosage: UNK UNK, PRN
     Route: 065
  8. JADENU [Suspect]
     Active Substance: DEFERASIROX
     Dosage: 900 MG, QD
     Route: 048
     Dates: start: 201808
  9. JADENU [Suspect]
     Active Substance: DEFERASIROX
     Dosage: 360 MG, QD
     Route: 048
  10. AMLODIPINE [Suspect]
     Active Substance: AMLODIPINE BESYLATE
     Indication: PRODUCT USED FOR UNKNOWN INDICATION
     Route: 048
  11. JADENU [Suspect]
     Active Substance: DEFERASIROX
     Indication: IRON OVERLOAD
     Dosage: 900 MG, QD
     Route: 048
     Dates: start: 20170527

REACTIONS (10)
  - Haemoglobin decreased [Recovering/Resolving]
  - Hypoaesthesia [Not Recovered/Not Resolved]
  - Dyspepsia [Unknown]
  - Hypersensitivity [Unknown]
  - Paraesthesia [Recovered/Resolved]
  - Diarrhoea [Not Recovered/Not Resolved]
  - Vomiting [Unknown]
  - Red blood cell count decreased [Unknown]
  - Abdominal pain upper [Unknown]
  - Therapeutic product effect incomplete [Unknown]

NARRATIVE: CASE EVENT DATE: 201705
